FAERS Safety Report 16336489 (Version 1)
Quarter: 2019Q2

REPORT INFORMATION
  Report Type: Spontaneous
  Country: US (occurrence: US)
  Receive Date: 20190521
  Receipt Date: 20190521
  Transmission Date: 20190711
  Serious: No
  Sender: FDA-Public Use
  Company Number: US-LEO PHARMA-318633

PATIENT
  Age: 34 Year
  Sex: Female

DRUGS (1)
  1. SKINOREN CUTANEOUS FOAM [Suspect]
     Active Substance: AZELAIC ACID
     Indication: ACNE
     Dosage: USED FOR TWO DAYS IN FEBRUARY AND THEN THE THIRD DAY DISCONTINUED FOAM DUE TO SIDE EFFECTS
     Route: 061

REACTIONS (5)
  - Application site swelling [Not Recovered/Not Resolved]
  - Pruritus [Not Recovered/Not Resolved]
  - Product use in unapproved indication [Unknown]
  - Application site erythema [Not Recovered/Not Resolved]
  - Maternal exposure during pregnancy [Unknown]
